FAERS Safety Report 15353291 (Version 1)
Quarter: 2018Q3

REPORT INFORMATION
  Report Type: Spontaneous
  Country: US (occurrence: US)
  Receive Date: 20180830
  Receipt Date: 20180830
  Transmission Date: 20181010
  Serious: Yes (Other)
  Sender: FDA-Public Use
  Company Number: None

PATIENT
  Age: 53 Year
  Sex: Female
  Weight: 151.74 kg

DRUGS (8)
  1. MIRENA [Concomitant]
     Active Substance: LEVONORGESTREL
  2. OZEMPIC [Suspect]
     Active Substance: SEMAGLUTIDE
     Indication: TYPE 2 DIABETES MELLITUS
     Dates: start: 20180809
  3. ATENOLOL. [Concomitant]
     Active Substance: ATENOLOL
  4. CYCLOBENZAPRINE. [Concomitant]
     Active Substance: CYCLOBENZAPRINE
  5. LISINOPRIL. [Concomitant]
     Active Substance: LISINOPRIL
  6. AMITRIPTYLINE [Concomitant]
     Active Substance: AMITRIPTYLINE
  7. ELIQUIS [Concomitant]
     Active Substance: APIXABAN
  8. BOTOX [Concomitant]
     Active Substance: ONABOTULINUMTOXINA

REACTIONS (5)
  - Vomiting [None]
  - Diarrhoea [None]
  - Decreased appetite [None]
  - Nausea [None]
  - Weight decreased [None]

NARRATIVE: CASE EVENT DATE: 20180823
